FAERS Safety Report 4766685-5 (Version None)
Quarter: 2005Q3

REPORT INFORMATION
  Report Type: 
  Country: None (occurrence: None)
  Receive Date: 20050909
  Receipt Date: 20050830
  Transmission Date: 20060218
  Serious: Yes (Hospitalization)
  Sender: FDA-Public Use
  Company Number: 05-08-1493

PATIENT
  Age: 50 Year
  Sex: Female

DRUGS (2)
  1. CLOZAPINE [Suspect]
     Indication: MANIA
     Dosage: 12.5-375MG, QD, ORAL
     Route: 048
     Dates: start: 20030401
  2. CLOZAPINE [Suspect]
     Indication: SCHIZOAFFECTIVE DISORDER
     Dosage: 12.5-375MG, QD, ORAL
     Route: 048
     Dates: start: 20030401

REACTIONS (2)
  - FALL [None]
  - HIP FRACTURE [None]
